FAERS Safety Report 5352583-5 (Version None)
Quarter: 2007Q2

REPORT INFORMATION
  Report Type: 
  Country: None (occurrence: None)
  Receive Date: 20070518
  Receipt Date: 20060706
  Transmission Date: 20071010
  Serious: Yes (Hospitalization)
  Sender: FDA-Public Use
  Company Number: Q06-032

PATIENT
  Age: 66 Year
  Sex: Male
  Weight: 73.4827 kg

DRUGS (24)
  1. SAMARIUM-153-EDTMP(SM-153) [Suspect]
     Indication: METASTASES TO BONE
     Dosage: 0.75 MCI/KG
     Dates: start: 20031218, end: 20040311
  2. SAMARIUM-153-EDTMP(SM-153) [Suspect]
     Indication: PROSTATE CANCER
     Dosage: 0.75 MCI/KG
     Dates: start: 20031218, end: 20040311
  3. ZOLEDRONIC ACID [Suspect]
     Indication: METASTASES TO BONE
     Dosage: 4 MG
     Dates: start: 20031219
  4. ZOLEDRONIC ACID [Suspect]
     Indication: PROSTATE CANCER
     Dosage: 4 MG
     Dates: start: 20031219
  5. ZOLEDRONIC ACID [Suspect]
     Indication: METASTASES TO BONE
     Dosage: 4 MG
     Dates: start: 20040113
  6. ZOLEDRONIC ACID [Suspect]
     Indication: PROSTATE CANCER
     Dosage: 4 MG
     Dates: start: 20040113
  7. ZOLEDRONIC ACID [Suspect]
     Indication: METASTASES TO BONE
     Dosage: 4 MG
     Dates: start: 20040210
  8. ZOLEDRONIC ACID [Suspect]
     Indication: PROSTATE CANCER
     Dosage: 4 MG
     Dates: start: 20040210
  9. ZOLEDRONIC ACID [Suspect]
     Indication: METASTASES TO BONE
     Dosage: 4 MG
     Dates: start: 20040311
  10. ZOLEDRONIC ACID [Suspect]
     Indication: PROSTATE CANCER
     Dosage: 4 MG
     Dates: start: 20040311
  11. ZOLEDRONIC ACID [Suspect]
     Indication: METASTASES TO BONE
     Dosage: 4 MG
     Dates: start: 20040406
  12. ZOLEDRONIC ACID [Suspect]
     Indication: PROSTATE CANCER
     Dosage: 4 MG
     Dates: start: 20040406
  13. ZOLEDRONIC ACID [Suspect]
     Indication: METASTASES TO BONE
     Dosage: 4 MG
     Dates: start: 20040504
  14. ZOLEDRONIC ACID [Suspect]
     Indication: PROSTATE CANCER
     Dosage: 4 MG
     Dates: start: 20040504
  15. OXYCONTIN [Concomitant]
  16. OXYCODONE HCL [Concomitant]
  17. HYDRA-ZIDE [Concomitant]
  18. PRAVACHOL [Concomitant]
  19. M.V.I. [Concomitant]
  20. CALCIUM SUPPLEMENT [Concomitant]
  21. SENOKOT [Concomitant]
  22. COLACE [Concomitant]
  23. XELODA [Concomitant]
  24. TAXOTERE [Concomitant]

REACTIONS (1)
  - BACK PAIN [None]
